FAERS Safety Report 22596114 (Version 1)
Quarter: 2023Q2

REPORT INFORMATION
  Report Type: Spontaneous
  Country: BR (occurrence: BR)
  Receive Date: 20230613
  Receipt Date: 20230613
  Transmission Date: 20230721
  Serious: Yes (Hospitalization, Other)
  Sender: FDA-Public Use
  Company Number: BR-Merck Healthcare KGaA-9406309

PATIENT
  Age: 49 Year
  Sex: Male
  Weight: 84 kg

DRUGS (5)
  1. ERBITUX [Suspect]
     Active Substance: CETUXIMAB
     Indication: Hypopharyngeal cancer
     Dosage: UNK UNK, UNKNOWN
     Route: 042
     Dates: start: 20220112, end: 20220420
  2. ERBITUX [Suspect]
     Active Substance: CETUXIMAB
     Dosage: 500 MG/M2, 2/M
     Route: 042
     Dates: start: 20220518, end: 20230329
  3. CISPLATIN [Suspect]
     Active Substance: CISPLATIN
     Indication: Hypopharyngeal cancer
     Dosage: UNK UNK, UNKNOWN
     Route: 065
     Dates: start: 20201015, end: 20201126
  4. CISPLATIN [Suspect]
     Active Substance: CISPLATIN
     Dosage: UNK UNK, UNKNOWN
     Route: 065
     Dates: start: 20220112, end: 20230419
  5. DOCETAXEL [Suspect]
     Active Substance: DOCETAXEL
     Indication: Hypopharyngeal cancer
     Dosage: UNK UNK, UNKNOWN
     Route: 065
     Dates: start: 20220112, end: 20230419

REACTIONS (6)
  - Portal vein thrombosis [Unknown]
  - Mesenteric vein thrombosis [Unknown]
  - Febrile neutropenia [Recovered/Resolved]
  - Splenic vein thrombosis [Unknown]
  - Mucosal inflammation [Unknown]
  - Off label use [Unknown]

NARRATIVE: CASE EVENT DATE: 20230405
